FAERS Safety Report 5135706-2 (Version None)
Quarter: 2006Q4

REPORT INFORMATION
  Report Type: 
  Country: None (occurrence: None)
  Receive Date: 20061024
  Receipt Date: 20061024
  Transmission Date: 20070319
  Serious: No
  Sender: FDA-Public Use
  Company Number: None

PATIENT

DRUGS (1)
  1. ZOCOR [Suspect]
     Indication: LIPIDS INCREASED
     Dosage: 10 MG  DAILY  PO
     Route: 048
     Dates: start: 20060302, end: 20060512

REACTIONS (1)
  - AGITATION [None]
